FAERS Safety Report 7267820-X (Version None)
Quarter: 2011Q1

REPORT INFORMATION
  Report Type: 
  Country: None (occurrence: None)
  Receive Date: 20110201
  Receipt Date: 20110124
  Transmission Date: 20110831
  Serious: Yes (Hospitalization)
  Sender: FDA-Public Use
  Company Number: B0693636A

PATIENT
  Sex: Female

DRUGS (2)
  1. HYCAMTIN [Suspect]
     Dosage: 2.3MGM2 PER DAY
     Route: 048
     Dates: start: 20101213, end: 20101218
  2. NEXIUM [Concomitant]
     Route: 065
     Dates: start: 20110107, end: 20110110

REACTIONS (8)
  - CHOLESTASIS [None]
  - NAUSEA [None]
  - HEPATOCELLULAR INJURY [None]
  - LIVER DISORDER [None]
  - VOMITING [None]
  - PERICARDITIS [None]
  - DYSPNOEA [None]
  - TREATMENT FAILURE [None]
